FAERS Safety Report 8501898-8 (Version None)
Quarter: 2012Q3

REPORT INFORMATION
  Report Type: 
  Country: None (occurrence: None)
  Receive Date: 20120711
  Receipt Date: 20120703
  Transmission Date: 20120928
  Serious: Yes (Other)
  Sender: FDA-Public Use
  Company Number: PHHY2012DE057697

PATIENT
  Age: 46 Year
  Sex: Male

DRUGS (1)
  1. IMATINIB MESYLATE [Suspect]
     Indication: CHRONIC MYELOID LEUKAEMIA

REACTIONS (4)
  - LYMPHOCYTOSIS [None]
  - CHROMOSOME ANALYSIS ABNORMAL [None]
  - CHRONIC LYMPHOCYTIC LEUKAEMIA [None]
  - NEOPLASM MALIGNANT [None]
